FAERS Safety Report 12912278 (Version 5)
Quarter: 2016Q4

REPORT INFORMATION
  Report Type: Spontaneous
  Country: IT (occurrence: IT)
  Receive Date: 20161104
  Receipt Date: 20161226
  Transmission Date: 20170207
  Serious: Yes (Other)
  Sender: FDA-Public Use
  Company Number: IT-TEVA-708180ACC

PATIENT
  Age: 67 Year
  Sex: Male

DRUGS (12)
  1. VORICONAZOLE. [Interacting]
     Active Substance: VORICONAZOLE
     Dosage: 400 MILLIGRAM DAILY; AFTER WEEK 9 OF TREATMENT; REDUCTION IN DOSE
     Route: 048
  2. CICLOSPORIN [Interacting]
     Active Substance: CYCLOSPORINE
     Indication: IMMUNOSUPPRESSANT DRUG THERAPY
     Dosage: TARGET TROUGH LEVEL 180NG/ML
     Route: 065
  3. CICLOSPORIN [Interacting]
     Active Substance: CYCLOSPORINE
     Indication: LIVER TRANSPLANT
     Dosage: UNK  (DOSE ADJUSTED)
     Route: 065
  4. PREDNISONE. [Interacting]
     Active Substance: PREDNISONE
     Indication: IMMUNOSUPPRESSANT DRUG THERAPY
     Route: 065
  5. VORICONAZOLE. [Interacting]
     Active Substance: VORICONAZOLE
     Dosage: 300 MILLIGRAM DAILY;
     Route: 048
  6. VORICONAZOLE. [Interacting]
     Active Substance: VORICONAZOLE
     Dosage: 800 MILLIGRAM DAILY; LOADING DOSE: FOLLOWED BY 200 MG EVERY 12 HOUR.
     Route: 048
  7. MYCOPHENOLIC ACID. [Interacting]
     Active Substance: MYCOPHENOLIC ACID
     Indication: LIVER TRANSPLANT
  8. PREDNISONE. [Interacting]
     Active Substance: PREDNISONE
     Indication: LIVER TRANSPLANT
     Route: 065
  9. VORICONAZOLE. [Suspect]
     Active Substance: VORICONAZOLE
     Indication: ASPERGILLUS INFECTION
     Route: 065
  10. TACROLIMUS. [Suspect]
     Active Substance: TACROLIMUS
     Indication: IMMUNOSUPPRESSANT DRUG THERAPY
     Route: 065
  11. MYCOPHENOLIC ACID. [Interacting]
     Active Substance: MYCOPHENOLIC ACID
     Indication: IMMUNOSUPPRESSANT DRUG THERAPY
     Route: 065
  12. PREDNISONE. [Interacting]
     Active Substance: PREDNISONE
     Route: 065

REACTIONS (7)
  - Cytomegalovirus infection [Unknown]
  - Nephropathy toxic [Unknown]
  - Neurotoxicity [Unknown]
  - Drug interaction [Unknown]
  - Bronchopulmonary aspergillosis [Unknown]
  - Liver transplant rejection [Unknown]
  - Hepatotoxicity [Unknown]
